FAERS Safety Report 6218511-5 (Version None)
Quarter: 2009Q2

REPORT INFORMATION
  Report Type: 
  Country: None (occurrence: None)
  Receive Date: 20090604
  Receipt Date: 20090604
  Transmission Date: 20091009
  Serious: Yes (Other)
  Sender: FDA-Public Use
  Company Number: None

PATIENT
  Age: 7 Year
  Sex: Male
  Weight: 26.8529 kg

DRUGS (2)
  1. GRISEOFULVIN [Suspect]
     Indication: TINEA INFECTION
     Dosage: 2 TEASPOONS BID PO
     Route: 048
     Dates: start: 20090527, end: 20090531
  2. KETOCONAZOLE [Concomitant]

REACTIONS (8)
  - ABDOMINAL DISCOMFORT [None]
  - FATIGUE [None]
  - HEAD INJURY [None]
  - HEADACHE [None]
  - OROPHARYNGEAL PAIN [None]
  - SYNCOPE [None]
  - THIRST [None]
  - VOMITING [None]
